FAERS Safety Report 10249009 (Version 1)
Quarter: 2014Q2

REPORT INFORMATION
  Report Type: Spontaneous
  Country: US (occurrence: None)
  Receive Date: 20140618
  Receipt Date: 20140618
  Transmission Date: 20141212
  Serious: Yes (Other)
  Sender: FDA-Public Use
  Company Number: None

PATIENT
  Sex: Female
  Weight: 70 kg

DRUGS (1)
  1. SALICYLIC ACID [Suspect]
     Dosage: 2 PUMPS DAILY TOPICALLY
     Route: 061
     Dates: start: 2014

REACTIONS (1)
  - Hypersensitivity [None]
